FAERS Safety Report 24921208 (Version 3)
Quarter: 2025Q1

REPORT INFORMATION
  Report Type: Report from Study
  Country: US (occurrence: US)
  Receive Date: 20250204
  Receipt Date: 20250213
  Transmission Date: 20250409
  Serious: Yes (Other)
  Sender: ROCHE
  Company Number: US-ROCHE-3443439

PATIENT
  Age: 32 Year
  Sex: Female

DRUGS (11)
  1. XOLAIR PFS [Suspect]
     Active Substance: OMALIZUMAB
     Indication: Asthma
     Route: 058
     Dates: start: 2006
  2. XOLAIR PFS [Suspect]
     Active Substance: OMALIZUMAB
     Route: 058
  3. XOLAIR PFS [Suspect]
     Active Substance: OMALIZUMAB
     Route: 058
  4. QVAR [Suspect]
     Active Substance: BECLOMETHASONE DIPROPIONATE
     Indication: Asthma
     Route: 065
     Dates: start: 202411, end: 202411
  5. ADDERALL [Concomitant]
     Active Substance: AMPHETAMINE ASPARTATE\AMPHETAMINE SULFATE\DEXTROAMPHETAMINE SACCHARATE\DEXTROAMPHETAMINE SULFATE
  6. LISINOPRIL [Concomitant]
     Active Substance: LISINOPRIL
  7. BUSPIRONE [Concomitant]
     Active Substance: BUSPIRONE HYDROCHLORIDE
  8. CITALOPRAM [Concomitant]
     Active Substance: CITALOPRAM
  9. XOPENEX [Concomitant]
     Active Substance: LEVALBUTEROL HYDROCHLORIDE
     Route: 055
  10. AUVI-Q [Concomitant]
     Active Substance: EPINEPHRINE
  11. FERROUS SULFATE ANHYDROUS [Concomitant]
     Active Substance: FERROUS SULFATE ANHYDROUS

REACTIONS (13)
  - Drug ineffective [Unknown]
  - Anaemia [Not Recovered/Not Resolved]
  - Product dose omission issue [Unknown]
  - Attention deficit hyperactivity disorder [Not Recovered/Not Resolved]
  - Anxiety [Not Recovered/Not Resolved]
  - Anaphylactic shock [Unknown]
  - Swelling face [Unknown]
  - Food allergy [Not Recovered/Not Resolved]
  - Urticaria [Unknown]
  - Asthenia [Unknown]
  - Scar [Not Recovered/Not Resolved]
  - Neuralgia [Not Recovered/Not Resolved]
  - Lethargy [Unknown]

NARRATIVE: CASE EVENT DATE: 20241101
